FAERS Safety Report 22383262 (Version 2)
Quarter: 2023Q2

REPORT INFORMATION
  Report Type: Spontaneous
  Country: US (occurrence: US)
  Receive Date: 20230530
  Receipt Date: 20230627
  Transmission Date: 20230721
  Serious: Yes (Other)
  Sender: FDA-Public Use
  Company Number: US-BAYER-2023A070662

PATIENT
  Age: 42 Year
  Sex: Female

DRUGS (1)
  1. MIRENA [Suspect]
     Active Substance: LEVONORGESTREL
     Dosage: 20?G/DAY
     Route: 015
     Dates: start: 20210727

REACTIONS (11)
  - Pregnancy with contraceptive device [None]
  - Device ineffective [None]
  - Heavy menstrual bleeding [None]
  - Abdominal discomfort [None]
  - Hypomenorrhoea [None]
  - Fatigue [None]
  - Lymphadenopathy [None]
  - Dyspareunia [None]
  - Hyposmia [None]
  - Device dislocation [Not Recovered/Not Resolved]
  - Amenorrhoea [None]
